FAERS Safety Report 25614447 (Version 1)
Quarter: 2025Q3

REPORT INFORMATION
  Report Type: Spontaneous
  Country: EU (occurrence: EU)
  Receive Date: 20250729
  Receipt Date: 20250729
  Transmission Date: 20251020
  Serious: Yes (Hospitalization, Disabling)
  Sender: NOVO NORDISK
  Company Number: None

PATIENT
  Age: 66 Year
  Sex: Female

DRUGS (1)
  1. OZEMPIC [Suspect]
     Active Substance: SEMAGLUTIDE
     Indication: Diabetes mellitus
     Dosage: 1 MG, QW
     Route: 058
     Dates: start: 20231016

REACTIONS (1)
  - Optic ischaemic neuropathy [Not Recovered/Not Resolved]

NARRATIVE: CASE EVENT DATE: 20250619
